FAERS Safety Report 11055341 (Version 3)
Quarter: 2015Q3

REPORT INFORMATION
  Report Type: Spontaneous
  Country: GB (occurrence: GB)
  Receive Date: 20150422
  Receipt Date: 20150701
  Transmission Date: 20151125
  Serious: Yes (Death, Other)
  Sender: FDA-Public Use
  Company Number: GB-SA-2015SA048192

PATIENT
  Age: 42 Year
  Sex: Female

DRUGS (6)
  1. RIFAMPICIN [Suspect]
     Active Substance: RIFAMPIN
     Indication: TUBERCULOSIS
     Dosage: RTG 800MG OD; ANTI-TB TREATMENT: STANDARD DOSES
     Route: 048
     Dates: start: 20130926, end: 20131023
  2. PYRAZINAMIDE. [Suspect]
     Active Substance: PYRAZINAMIDE
     Indication: TUBERCULOSIS
     Dosage: RTG 800MG OD; ANTI-TB TREATMENT: STANDARD DOSES
     Route: 048
     Dates: start: 20130926, end: 20131023
  3. ETHAMBUTOL [Suspect]
     Active Substance: ETHAMBUTOL HYDROCHLORIDE
     Indication: TUBERCULOSIS
     Dosage: RTG 800MG OD; ANTI-TB TREATMENT: STANDARD DOSES
     Route: 048
     Dates: start: 20130926, end: 20131023
  4. ATAZANAVIR [Concomitant]
     Active Substance: ATAZANAVIR
     Indication: ILL-DEFINED DISORDER
  5. ISONIAZID. [Suspect]
     Active Substance: ISONIAZID
     Indication: TUBERCULOSIS
     Dosage: RTG 800MG OD; ANTI-TB TREATMENT: STANDARD DOSES
     Route: 048
     Dates: start: 20130926, end: 20131023
  6. ISENTRESS [Suspect]
     Active Substance: RALTEGRAVIR POTASSIUM
     Indication: HIV INFECTION
     Route: 048
     Dates: start: 20130926, end: 20131023

REACTIONS (2)
  - Acute hepatic failure [Fatal]
  - Drug-induced liver injury [Not Recovered/Not Resolved]

NARRATIVE: CASE EVENT DATE: 20131020
